FAERS Safety Report 7237954-4 (Version None)
Quarter: 2011Q1

REPORT INFORMATION
  Report Type: 
  Country: None (occurrence: None)
  Receive Date: 20110119
  Receipt Date: 20110119
  Transmission Date: 20110831
  Serious: Yes (Other)
  Sender: FDA-Public Use
  Company Number: None

PATIENT
  Sex: Female
  Weight: 90.7194 kg

DRUGS (1)
  1. LEVAQUIN [Suspect]
     Indication: STAPHYLOCOCCAL INFECTION
     Dosage: 1 TABLET DAILY PO
     Route: 048
     Dates: start: 20100825, end: 20100912

REACTIONS (10)
  - FEELING HOT [None]
  - RASH PRURITIC [None]
  - LOCALISED OEDEMA [None]
  - EYELID OEDEMA [None]
  - DRY SKIN [None]
  - FACE OEDEMA [None]
  - ERYTHEMA [None]
  - SKIN EXFOLIATION [None]
  - DANDRUFF [None]
  - ALOPECIA [None]
